FAERS Safety Report 6504955-0 (Version None)
Quarter: 2009Q4

REPORT INFORMATION
  Report Type: 
  Country: None (occurrence: None)
  Receive Date: 20091218
  Receipt Date: 20091214
  Transmission Date: 20100525
  Serious: Yes (Hospitalization)
  Sender: FDA-Public Use
  Company Number: IE-ROCHE-674806

PATIENT
  Age: 46 Year
  Sex: Male

DRUGS (13)
  1. DACLIZUMAB [Suspect]
     Route: 042
  2. DACLIZUMAB [Suspect]
     Route: 042
  3. VALGANCICLOVIR HCL [Suspect]
     Indication: CYTOMEGALOVIRUS INFECTION
     Route: 048
  4. VALGANCICLOVIR HCL [Suspect]
     Route: 048
  5. MYCOPHENOLATE MOFETIL [Suspect]
     Route: 048
  6. MYCOPHENOLATE MOFETIL [Suspect]
     Dosage: DOSE REDUCED.
     Route: 048
  7. GANCICLOVIR [Suspect]
     Indication: CYTOMEGALOVIRUS INFECTION
     Route: 042
  8. TACROLIMUS [Suspect]
     Route: 048
  9. TACROLIMUS [Suspect]
     Dosage: DOSE REDUCED
     Route: 048
  10. PREDNISOLONE [Suspect]
     Route: 048
  11. PREDNISOLONE [Suspect]
     Dosage: DOSE REDUCED.
     Route: 048
  12. METHYLPREDNISOLONE [Suspect]
     Dosage: DOSE: 3 X 1 GRAM
     Route: 042
  13. METHYLPREDNISOLONE [Suspect]
     Dosage: DOSE REDUCED.
     Route: 042

REACTIONS (1)
  - CYTOMEGALOVIRUS INFECTION [None]
